FAERS Safety Report 5751549-0 (Version None)
Quarter: 2008Q2

REPORT INFORMATION
  Report Type: 
  Country: None (occurrence: None)
  Receive Date: 20080528
  Receipt Date: 20080516
  Transmission Date: 20081010
  Serious: Yes (Death, Hospitalization, Other)
  Sender: FDA-Public Use
  Company Number: PHHY2008CH08035

PATIENT
  Age: 60 Year
  Sex: Male

DRUGS (9)
  1. GLEEVEC [Suspect]
     Indication: CHRONIC MYELOID LEUKAEMIA
     Dosage: 500 MG DAILY
     Dates: start: 20000101
  2. GLEEVEC [Suspect]
     Dosage: 600 MG DAILY
     Dates: end: 20070606
  3. TASIGNA [Suspect]
     Indication: CHRONIC MYELOID LEUKAEMIA
     Dosage: 800 MG DAILY
     Dates: start: 20070606, end: 20080114
  4. TASIGNA [Suspect]
     Dosage: 400 MG DAILY
     Dates: start: 20080118
  5. TASIGNA [Suspect]
     Dosage: 600 MG DAILY
     Dates: start: 20080128, end: 20080306
  6. REMERON [Suspect]
     Dosage: 15 MG DAILY
     Dates: start: 20080128, end: 20080306
  7. IMODIUM [Concomitant]
     Indication: DIARRHOEA
  8. ESCITALOPRAM [Concomitant]
  9. ASPIRIN [Concomitant]
     Dosage: 100 MG DAILY

REACTIONS (35)
  - ACUTE MYOCARDIAL INFARCTION [None]
  - ANXIETY [None]
  - ASTHENIA [None]
  - BLOOD CREATINE PHOSPHOKINASE INCREASED [None]
  - BLOOD CREATININE INCREASED [None]
  - BRONCHOPNEUMONIA [None]
  - CARDIAC ARREST [None]
  - CARDIAC FAILURE ACUTE [None]
  - CARDIOVASCULAR INSUFFICIENCY [None]
  - CARDIOVERSION [None]
  - CHEST DISCOMFORT [None]
  - CHEST PAIN [None]
  - CHILLS [None]
  - CONDUCTION DISORDER [None]
  - DIARRHOEA [None]
  - DRUG RESISTANCE [None]
  - DYSPEPSIA [None]
  - DYSPNOEA EXERTIONAL [None]
  - EYELID OEDEMA [None]
  - FATIGUE [None]
  - HYPERHIDROSIS [None]
  - LEFT VENTRICULAR HYPERTROPHY [None]
  - LOSS OF CONSCIOUSNESS [None]
  - MULTI-ORGAN FAILURE [None]
  - MUSCLE SPASMS [None]
  - NAUSEA [None]
  - PAIN [None]
  - PLEURAL EFFUSION [None]
  - POOR PERIPHERAL CIRCULATION [None]
  - PULMONARY OEDEMA [None]
  - PYREXIA [None]
  - SHOCK [None]
  - SLEEP APNOEA SYNDROME [None]
  - TROPONIN INCREASED [None]
  - VENTRICULAR FIBRILLATION [None]
